FAERS Safety Report 4522824-2 (Version None)
Quarter: 2004Q4

REPORT INFORMATION
  Report Type: 
  Country: None (occurrence: None)
  Receive Date: 20041207
  Receipt Date: 20041201
  Transmission Date: 20050328
  Serious: Yes (Hospitalization, Disabling)
  Sender: FDA-Public Use
  Company Number: HQWYE972010JUL04

PATIENT
  Age: 70 Year
  Sex: Male

DRUGS (11)
  1. CORDARONE [Suspect]
     Dosage: 200 MG 1X PER 1 DAY ORAL
     Route: 048
     Dates: start: 19980101
  2. BACTRIM [Suspect]
     Dosage: 400 MG 1X PER 1 DAY ORAL
     Route: 048
     Dates: start: 20040301
  3. MEPRONIZINE (ACEPROMETAZINE/MEPROBAMATE, ) [Suspect]
     Dosage: 820 MG 1X PER 1 DAY ORAL
     Route: 048
     Dates: start: 19980101
  4. RISPERDAL [Suspect]
     Dosage: 4 MG 1X PER 1 DAY ORAL
     Route: 048
     Dates: start: 19900101
  5. THALIDOMIDE (THALIDOMIDE, ) [Suspect]
     Dosage: 100 MG 1X PER 1 DAY ORAL
     Route: 048
     Dates: start: 20040225, end: 20040401
  6. THALIDOMIDE (THALIDOMIDE, ) [Suspect]
     Dosage: ORAL
     Route: 048
     Dates: start: 20040401, end: 20040101
  7. RAMIPRIL [Concomitant]
  8. SPORANOX [Concomitant]
  9. FLECAINE (FLECAINIDE ACETATE) [Concomitant]
  10. PROZAC [Concomitant]
  11. MORPHINE SULFATE [Concomitant]

REACTIONS (5)
  - BRONCHIAL OBSTRUCTION [None]
  - HAEMODYNAMIC INSTABILITY [None]
  - PERIPHERAL MOTOR NEUROPATHY [None]
  - PERIPHERAL SENSORY NEUROPATHY [None]
  - STATUS EPILEPTICUS [None]
